FAERS Safety Report 9496234 (Version 1)
Quarter: 2013Q3

REPORT INFORMATION
  Report Type: Spontaneous
  Country: JP (occurrence: JP)
  Receive Date: 20130904
  Receipt Date: 20130904
  Transmission Date: 20140515
  Serious: Yes (Other)
  Sender: FDA-Public Use
  Company Number: JP-ROCHE-1269642

PATIENT
  Age: 7 Decade
  Sex: Female

DRUGS (4)
  1. HERCEPTIN [Suspect]
     Indication: GASTRIC CANCER
     Dosage: DOSAGE IS UNCERTAIN.
     Route: 041
  2. XELODA [Suspect]
     Indication: GASTRIC CANCER
     Dosage: DOSAGE IS UNCERTAIN.
     Route: 048
  3. CISPLATIN [Suspect]
     Indication: GASTRIC CANCER
     Route: 041
  4. DAIKENCHUTO [Concomitant]
     Dosage: DOSAGE IS UNCERTAIN.
     Route: 048

REACTIONS (1)
  - Palmar-plantar erythrodysaesthesia syndrome [Unknown]
